FAERS Safety Report 8380792-X (Version None)
Quarter: 2012Q2

REPORT INFORMATION
  Report Type: 
  Country: None (occurrence: None)
  Receive Date: 20120523
  Receipt Date: 20101227
  Transmission Date: 20120825
  Serious: Yes (Death)
  Sender: FDA-Public Use
  Company Number: PHEH2010US003910

PATIENT
  Sex: Male

DRUGS (1)
  1. NEORAL [Suspect]
     Indication: LUNG TRANSPLANT
     Dosage: 50 MG, BID
     Route: 048
     Dates: start: 20100811, end: 20100811

REACTIONS (1)
  - DEATH [None]
